FAERS Safety Report 23950159 (Version 1)
Quarter: 2024Q2

REPORT INFORMATION
  Report Type: Other
  Country: CN (occurrence: CN)
  Receive Date: 20240607
  Receipt Date: 20240607
  Transmission Date: 20240716
  Serious: Yes (Hospitalization, Other)
  Sender: FDA-Public Use
  Company Number: CN-GE HEALTHCARE-2024CSU006043

PATIENT
  Age: 66 Year
  Sex: Male
  Weight: 75 kg

DRUGS (1)
  1. OMNIPAQUE [Suspect]
     Active Substance: IOHEXOL
     Indication: Diagnostic procedure
     Dosage: 70 ML, TOTAL
     Route: 042
     Dates: start: 20240524, end: 20240524

REACTIONS (4)
  - Dysphonia [Recovering/Resolving]
  - Restlessness [Recovering/Resolving]
  - Rash erythematous [Recovering/Resolving]
  - Pruritus [Recovering/Resolving]

NARRATIVE: CASE EVENT DATE: 20240524
